FAERS Safety Report 6640479-8 (Version None)
Quarter: 2010Q1

REPORT INFORMATION
  Report Type: 
  Country: None (occurrence: None)
  Receive Date: 20100318
  Receipt Date: 20100309
  Transmission Date: 20100710
  Serious: Yes (Death, Life-Threatening, Hospitalization)
  Sender: FDA-Public Use
  Company Number: GB-PFIZER INC-2010021164

PATIENT
  Age: 78 Year
  Sex: Female
  Weight: 64 kg

DRUGS (4)
  1. ECALTA [Suspect]
     Indication: SYSTEMIC CANDIDA
     Dosage: 100 MG, UNK
     Route: 042
  2. AMIODARONE [Concomitant]
     Dosage: UNK
     Dates: end: 20100115
  3. ATORVASTATIN [Concomitant]
     Dosage: UNK
     Dates: end: 20100115
  4. PANTOPRAZOLE [Concomitant]
     Dosage: UNK

REACTIONS (3)
  - BLOOD BILIRUBIN INCREASED [None]
  - HEPATIC FAILURE [None]
  - MULTI-ORGAN FAILURE [None]
